FAERS Safety Report 11315012 (Version 1)
Quarter: 2015Q3

REPORT INFORMATION
  Report Type: Spontaneous
  Country: US (occurrence: US)
  Receive Date: 20150727
  Receipt Date: 20150727
  Transmission Date: 20151125
  Serious: Yes (Death, Hospitalization, Other)
  Sender: FDA-Public Use
  Company Number: US-PFIZER INC-2015238146

PATIENT
  Age: 11 Year
  Sex: Male

DRUGS (2)
  1. MEPHOBARBITAL. [Concomitant]
     Active Substance: MEPHOBARBITAL
     Indication: SEIZURE
     Dosage: 270 MG, DAILY
     Dates: start: 19610326
  2. PHENYTOIN. [Suspect]
     Active Substance: PHENYTOIN
     Indication: SEIZURE
     Dosage: 180 MG, DAILY
     Dates: start: 19610326

REACTIONS (5)
  - Hepatic necrosis [Fatal]
  - Lymphadenopathy [Fatal]
  - Dermatitis exfoliative [Unknown]
  - Hepatic failure [Fatal]
  - Drug-induced liver injury [Unknown]

NARRATIVE: CASE EVENT DATE: 19610410
